FAERS Safety Report 8470337-8 (Version None)
Quarter: 2012Q2

REPORT INFORMATION
  Report Type: 
  Country: None (occurrence: None)
  Receive Date: 20120627
  Receipt Date: 20120627
  Transmission Date: 20120825
  Serious: No
  Sender: FDA-Public Use
  Company Number: US-PFIZER INC-2011269375

PATIENT
  Sex: Female
  Weight: 78.5 kg

DRUGS (2)
  1. LEVOXYL [Concomitant]
     Indication: HYPOTHYROIDISM
  2. PROPRANOLOL HCL [Suspect]
     Indication: MIGRAINE
     Dosage: 120 MG, 1X/DAY
     Route: 048
     Dates: start: 20111030

REACTIONS (2)
  - DIZZINESS [None]
  - FEELING ABNORMAL [None]
